FAERS Safety Report 17619635 (Version 3)
Quarter: 2020Q2

REPORT INFORMATION
  Report Type: Report from Study
  Country: None (occurrence: NL)
  Receive Date: 20200403
  Receipt Date: 20200423
  Transmission Date: 20200713
  Serious: Yes (Hospitalization, Other)
  Sender: FDA-Public Use
  Company Number: NL-ABBVIE-19K-114-2997106-00

PATIENT
  Age: 61 Year
  Sex: Female

DRUGS (13)
  1. DUODOPA [Suspect]
     Active Substance: CARBIDOPA\LEVODOPA
     Indication: PARKINSON^S DISEASE
     Dosage: MD: 14.0, CD: 2.7, ED: 1.0
     Route: 050
     Dates: start: 20191104
  2. SYMMETREL [Concomitant]
     Active Substance: AMANTADINE HYDROCHLORIDE
     Indication: PRODUCT USED FOR UNKNOWN INDICATION
  3. PARACETAMOL [Concomitant]
     Active Substance: ACETAMINOPHEN
     Indication: PRODUCT USED FOR UNKNOWN INDICATION
     Dosage: IF NEEDED 4 TIMES A DAY TWO TABLETS
     Route: 048
     Dates: start: 20200220
  4. OMEPRAZOLE. [Concomitant]
     Active Substance: OMEPRAZOLE
     Indication: PRODUCT USED FOR UNKNOWN INDICATION
     Route: 048
     Dates: start: 20200220
  5. OXAZEPAM. [Concomitant]
     Active Substance: OXAZEPAM
     Indication: PRODUCT USED FOR UNKNOWN INDICATION
     Dosage: IF NEEDED TWICE A DAY HALF A UNIT
     Route: 048
     Dates: start: 20200220
  6. ROPINIROLE RET [Concomitant]
     Indication: PARKINSON^S DISEASE
     Route: 048
     Dates: start: 20200220
  7. MORPHINE [Concomitant]
     Active Substance: MORPHINE
     Indication: PRODUCT USED FOR UNKNOWN INDICATION
     Dates: start: 20200220
  8. INSULIN GLARGINE [Concomitant]
     Active Substance: INSULIN GLARGINE
     Indication: PRODUCT USED FOR UNKNOWN INDICATION
     Dosage: INJ 300E/ML PEN 1.5ML
     Dates: start: 20200220
  9. TRULICITY [Concomitant]
     Active Substance: DULAGLUTIDE
     Indication: PRODUCT USED FOR UNKNOWN INDICATION
     Dosage: 1.5MG/0.5ML (3MG/ML), ONLY ON SATURDAY ONE UNIT
     Route: 058
     Dates: start: 20200215
  10. ATENOLOL. [Concomitant]
     Active Substance: ATENOLOL
     Indication: PRODUCT USED FOR UNKNOWN INDICATION
     Route: 048
     Dates: start: 20200220
  11. SINEMET [Concomitant]
     Active Substance: CARBIDOPA\LEVODOPA
     Indication: PARKINSON^S DISEASE
  12. METFORMIN [Concomitant]
     Active Substance: METFORMIN HYDROCHLORIDE
     Indication: PRODUCT USED FOR UNKNOWN INDICATION
     Route: 048
     Dates: start: 20200220
  13. GRANISETRON [Concomitant]
     Active Substance: GRANISETRON
     Indication: PRODUCT USED FOR UNKNOWN INDICATION
     Dosage: AS NEEDED THREE TIMES A DAY ONE TABLET
     Route: 048

REACTIONS (3)
  - Cholecystectomy [Unknown]
  - Abdominal pain [Recovered/Resolved]
  - Stress [Recovered/Resolved]

NARRATIVE: CASE EVENT DATE: 201911
